FAERS Safety Report 5663113-2 (Version None)
Quarter: 2008Q1

REPORT INFORMATION
  Report Type: 
  Country: None (occurrence: None)
  Receive Date: 20080313
  Receipt Date: 20080305
  Transmission Date: 20080703
  Serious: Yes (Hospitalization, Disabling)
  Sender: FDA-Public Use
  Company Number: B0456124A

PATIENT
  Age: 86 Year
  Sex: Female
  Weight: 62 kg

DRUGS (6)
  1. ARIXTRA [Suspect]
     Route: 058
  2. ZANIDIP [Concomitant]
     Route: 065
  3. ELISOR [Concomitant]
     Route: 065
  4. COLCHIMAX [Concomitant]
     Route: 065
  5. CLASTOBAN [Concomitant]
     Route: 065
  6. AROMASIN [Concomitant]
     Route: 065

REACTIONS (5)
  - HAEMATOMA [None]
  - JOINT SWELLING [None]
  - NERVE COMPRESSION [None]
  - PARALYSIS [None]
  - SPINAL CORD DISORDER [None]
